FAERS Safety Report 6105252-8 (Version None)
Quarter: 2009Q1

REPORT INFORMATION
  Report Type: 
  Country: None (occurrence: None)
  Receive Date: 20090306
  Receipt Date: 20080402
  Transmission Date: 20090719
  Serious: Yes (Death)
  Sender: FDA-Public Use
  Company Number: FR-ASTRAZENECA-2008CG00509

PATIENT
  Age: 10610 Day
  Sex: Male

DRUGS (3)
  1. NEXIUM [Suspect]
     Indication: GASTRIC ULCER
     Route: 048
  2. DEPAKOTE [Suspect]
     Route: 048
     Dates: end: 20080114
  3. HALDOL [Concomitant]

REACTIONS (3)
  - ACUTE HEPATIC FAILURE [None]
  - COMA [None]
  - DRUG TOXICITY [None]
